FAERS Safety Report 4690094-0 (Version None)
Quarter: 2005Q2

REPORT INFORMATION
  Report Type: 
  Country: None (occurrence: None)
  Receive Date: 20050613
  Receipt Date: 20050603
  Transmission Date: 20051028
  Serious: Yes (Hospitalization)
  Sender: FDA-Public Use
  Company Number: HQWYE215603JUN05

PATIENT
  Sex: Male

DRUGS (1)
  1. PANTOLOC (PANTOPRAZOLE, TABLET, DELAYED RELEASE) [Suspect]
     Indication: DYSPEPSIA
     Dosage: ^SOME TIME (S) SOME DF^ ORAL
     Route: 048
     Dates: end: 20050507

REACTIONS (1)
  - HOSPITALISATION [None]
